FAERS Safety Report 23687688 (Version 1)
Quarter: 2024Q1

REPORT INFORMATION
  Report Type: Spontaneous
  Country: US (occurrence: US)
  Receive Date: 20240329
  Receipt Date: 20240329
  Transmission Date: 20240409
  Serious: Yes (Hospitalization)
  Sender: FDA-Public Use
  Company Number: US-CATALYST PHARMACEUTICALS, INC-US-CATA-24-00097

PATIENT
  Sex: Male
  Weight: 40.816 kg

DRUGS (7)
  1. FIRDAPSE [Suspect]
     Active Substance: AMIFAMPRIDINE PHOSPHATE
     Indication: Congenital myasthenic syndrome
     Dosage: 5 MG 3X A DAY
     Route: 048
     Dates: start: 20231110, end: 20240225
  2. ALBUTEROL SULFATE [Concomitant]
     Active Substance: ALBUTEROL SULFATE
     Indication: Lung disorder
     Dosage: 1 PUFF AS NEEDED
     Route: 055
  3. ALBUTEROL SULFATE [Concomitant]
     Active Substance: ALBUTEROL SULFATE
     Indication: Lung disorder
     Dosage: 5 MILLILITER, BID
     Route: 065
  4. ALLEGRA [Concomitant]
     Active Substance: FEXOFENADINE HYDROCHLORIDE
     Indication: Seasonal allergy
     Dosage: 180 MILLIGRAM, QD
     Route: 065
  5. FLONASE [Concomitant]
     Active Substance: FLUTICASONE PROPIONATE
     Indication: Seasonal allergy
     Dosage: 1 DOSAGE FORM, QD
     Route: 045
  6. VITAMINS [Concomitant]
     Active Substance: VITAMINS
     Indication: Hypovitaminosis
     Dosage: 1 DOSAGE FORM, QD
     Route: 065
  7. SYMBICORT [Concomitant]
     Active Substance: BUDESONIDE\FORMOTEROL FUMARATE DIHYDRATE
     Indication: Lung disorder
     Dosage: 2 PUFFS,BID
     Route: 055

REACTIONS (9)
  - Pneumonia bacterial [Unknown]
  - Acute respiratory failure [Unknown]
  - Influenza [Unknown]
  - Anxiety [Unknown]
  - Pharyngeal hypoaesthesia [Not Recovered/Not Resolved]
  - Heart rate increased [Unknown]
  - Nervousness [Not Recovered/Not Resolved]
  - Hypoaesthesia oral [Unknown]
  - Off label use [Unknown]

NARRATIVE: CASE EVENT DATE: 20230101
